FAERS Safety Report 13461391 (Version 1)
Quarter: 2017Q2

REPORT INFORMATION
  Report Type: Spontaneous
  Country: CN (occurrence: CN)
  Receive Date: 20170420
  Receipt Date: 20170420
  Transmission Date: 20170830
  Serious: Yes (Other)
  Sender: FDA-Public Use
  Company Number: CN-JNJFOC-20170411550

PATIENT
  Sex: Male

DRUGS (3)
  1. ZYTIGA [Suspect]
     Active Substance: ABIRATERONE ACETATE
     Indication: HORMONE-REFRACTORY PROSTATE CANCER
     Route: 048
  2. PREDNISOLONE. [Concomitant]
     Active Substance: PREDNISOLONE
     Indication: HORMONE-REFRACTORY PROSTATE CANCER
     Route: 065
  3. ZYTIGA [Suspect]
     Active Substance: ABIRATERONE ACETATE
     Indication: HORMONE-REFRACTORY PROSTATE CANCER
     Route: 048

REACTIONS (18)
  - Fluid retention [Unknown]
  - Gastrointestinal disorder [Unknown]
  - Cardiac disorder [Unknown]
  - Oedema [Recovered/Resolved]
  - Blood potassium decreased [Unknown]
  - Hepatic function abnormal [Recovered/Resolved]
  - Prostatic specific antigen increased [Unknown]
  - Sodium retention [Unknown]
  - Liver injury [Unknown]
  - Headache [Recovered/Resolved]
  - Haematuria [Unknown]
  - Diarrhoea [Unknown]
  - Acute kidney injury [Recovered/Resolved]
  - Rhabdomyolysis [Recovered/Resolved]
  - Hypertension [Unknown]
  - Transaminases increased [Unknown]
  - Fracture [Unknown]
  - Back pain [Recovered/Resolved]
